FAERS Safety Report 4610168-X (Version None)
Quarter: 2005Q1

REPORT INFORMATION
  Report Type: 
  Country: None (occurrence: None)
  Receive Date: 20050316
  Receipt Date: 20040818
  Transmission Date: 20050727
  Serious: Yes (Other)
  Sender: FDA-Public Use
  Company Number: PHEH2004US08976

PATIENT
  Age: 61 Year
  Sex: Female
  Weight: 118 kg

DRUGS (11)
  1. AREDIA [Suspect]
     Indication: MULTIPLE MYELOMA
     Dosage: UNK,UNK
     Dates: start: 19990825, end: 20020417
  2. ZOMETA [Suspect]
     Indication: METASTASES TO BONE
     Dosage: 4 MG, QMO
     Route: 042
     Dates: start: 20020508, end: 20040714
  3. DECADRON [Concomitant]
  4. THALIDOMIDE [Concomitant]
  5. OXYCONTIN [Concomitant]
  6. LEVAQUIN [Concomitant]
  7. COMPAZINE [Concomitant]
     Dosage: UNK, PRN
  8. COUMADIN [Concomitant]
  9. CHEMOTHERAPEUTICS,OTHER [Concomitant]
  10. PREDNISONE [Concomitant]
  11. ALKERAN [Concomitant]

REACTIONS (31)
  - ABSCESS ORAL [None]
  - ANAEMIA [None]
  - ARTHRALGIA [None]
  - BONE DISORDER [None]
  - BONE PAIN [None]
  - CONTUSION [None]
  - DEEP VEIN THROMBOSIS [None]
  - DENTAL PROSTHESIS PLACEMENT [None]
  - DIZZINESS [None]
  - EPISTAXIS [None]
  - FATIGUE [None]
  - GINGIVAL PAIN [None]
  - HIP FRACTURE [None]
  - JOINT SWELLING [None]
  - MEMORY IMPAIRMENT [None]
  - MENTAL STATUS CHANGES [None]
  - METASTASES TO BONE [None]
  - MUCOSAL INFLAMMATION [None]
  - MUSCLE TWITCHING [None]
  - OPERATIVE HAEMORRHAGE [None]
  - OSTEONECROSIS [None]
  - PAIN IN JAW [None]
  - PATHOLOGICAL FRACTURE [None]
  - PLASMACYTOMA [None]
  - POLLAKIURIA [None]
  - POST PROCEDURAL HAEMORRHAGE [None]
  - PRIMARY SEQUESTRUM [None]
  - SEQUESTRECTOMY [None]
  - SYNOVITIS [None]
  - TEMPERATURE REGULATION DISORDER [None]
  - TOOTH EXTRACTION [None]
